FAERS Safety Report 11864034 (Version 1)
Quarter: 2015Q4

REPORT INFORMATION
  Report Type: Spontaneous
  Country: US (occurrence: US)
  Receive Date: 20151223
  Receipt Date: 20151223
  Transmission Date: 20160305
  Serious: Yes (Death, Other)
  Sender: FDA-Public Use
  Company Number: US-JNJFOC-20151217402

PATIENT
  Age: 5 Decade
  Sex: Female
  Weight: 81.65 kg

DRUGS (2)
  1. DOXIL [Suspect]
     Active Substance: DOXORUBICIN HYDROCHLORIDE
     Indication: BREAST CANCER METASTATIC
     Route: 042
  2. DOXIL [Suspect]
     Active Substance: DOXORUBICIN HYDROCHLORIDE
     Indication: BREAST CANCER METASTATIC
     Route: 042

REACTIONS (3)
  - Cardiac arrest [Fatal]
  - Palmar-plantar erythrodysaesthesia syndrome [Unknown]
  - Breast cancer metastatic [Unknown]
